FAERS Safety Report 4360861-1 (Version None)
Quarter: 2004Q2

REPORT INFORMATION
  Report Type: 
  Country: None (occurrence: None)
  Receive Date: 20040520
  Receipt Date: 20040427
  Transmission Date: 20050107
  Serious: Yes (Hospitalization)
  Sender: FDA-Public Use
  Company Number: JP-BRISTOL-MYERS SQUIBB COMPANY-12575213

PATIENT
  Age: 79 Year
  Sex: Male

DRUGS (5)
  1. MEVALOTIN [Suspect]
     Indication: HYPERLIPIDAEMIA
     Route: 048
     Dates: end: 20040408
  2. ZANTAC [Suspect]
     Indication: GASTRIC ULCER
     Route: 048
     Dates: end: 20040408
  3. CONIEL [Concomitant]
     Indication: HYPERTENSION
     Route: 048
     Dates: end: 20040408
  4. VASOLAN [Concomitant]
     Indication: HYPERTENSION
     Route: 048
     Dates: end: 20040408
  5. URINORM [Concomitant]
     Indication: HYPERURICAEMIA
     Route: 048
     Dates: end: 20040408

REACTIONS (3)
  - BLOOD CREATINE PHOSPHOKINASE INCREASED [None]
  - RENAL FAILURE ACUTE [None]
  - RHABDOMYOLYSIS [None]
